FAERS Safety Report 22339269 (Version 1)
Quarter: 2023Q2

REPORT INFORMATION
  Report Type: Spontaneous
  Country: ES (occurrence: ES)
  Receive Date: 20230518
  Receipt Date: 20230518
  Transmission Date: 20230722
  Serious: Yes (Other)
  Sender: FDA-Public Use
  Company Number: ES-PFIZER INC-PV202300085475

PATIENT
  Age: 32 Year
  Sex: Female

DRUGS (1)
  1. TOFACITINIB CITRATE [Suspect]
     Active Substance: TOFACITINIB CITRATE
     Indication: Alopecia areata
     Dosage: UNK
     Dates: start: 2020, end: 20230301

REACTIONS (7)
  - Amenorrhoea [Recovered/Resolved]
  - Abdominal pain [Unknown]
  - Food intolerance [Recovered/Resolved]
  - Leiomyoma [Unknown]
  - Drug intolerance [Recovered/Resolved]
  - Off label use [Unknown]
  - Drug effective for unapproved indication [Unknown]

NARRATIVE: CASE EVENT DATE: 20200101
